FAERS Safety Report 21000075 (Version 2)
Quarter: 2022Q3

REPORT INFORMATION
  Report Type: Spontaneous
  Country: NL (occurrence: NL)
  Receive Date: 20220623
  Receipt Date: 20220708
  Transmission Date: 20221027
  Serious: Yes (Hospitalization)
  Sender: FDA-Public Use
  Company Number: NL-TEVA-2022-NL-2047607

PATIENT
  Age: 68 Year
  Sex: Male

DRUGS (1)
  1. OXYCODONE [Suspect]
     Active Substance: OXYCODONE
     Indication: Back pain
     Dosage: EMPTY BOX OF 90 OXYCODONE 10 MG TABLETS NEXT TO HIS BED.
     Route: 065

REACTIONS (6)
  - Overdose [Unknown]
  - Poisoning [Unknown]
  - Depressed level of consciousness [Recovering/Resolving]
  - Hypoventilation [Recovering/Resolving]
  - Respiratory failure [Recovering/Resolving]
  - Bezoar [Recovering/Resolving]
